FAERS Safety Report 20935667 (Version 2)
Quarter: 2022Q2

REPORT INFORMATION
  Report Type: Report from Study
  Country: US (occurrence: US)
  Receive Date: 20220609
  Receipt Date: 20220615
  Transmission Date: 20220720
  Serious: No
  Sender: FDA-Public Use
  Company Number: US-NOVARTISTESTPH-NVSC2022US132106

PATIENT
  Sex: Male

DRUGS (1)
  1. ENTRESTO [Suspect]
     Active Substance: SACUBITRIL\VALSARTAN
     Indication: Product used for unknown indication
     Dosage: UNK (STARTED TODAY)
     Route: 065

REACTIONS (6)
  - Dysstasia [Unknown]
  - Hypoacusis [Unknown]
  - Fall [Unknown]
  - Joint injury [Unknown]
  - Hypotension [Unknown]
  - Dizziness [Unknown]
